FAERS Safety Report 7342783-7 (Version None)
Quarter: 2011Q1

REPORT INFORMATION
  Report Type: 
  Country: None (occurrence: None)
  Receive Date: 20110310
  Receipt Date: 20110228
  Transmission Date: 20110831
  Serious: Yes (Death)
  Sender: FDA-Public Use
  Company Number: JP-SANOFI-AVENTIS-2010SA076870

PATIENT
  Age: 52 Year
  Sex: Male

DRUGS (13)
  1. KYTRIL [Concomitant]
     Dates: start: 20090728, end: 20090728
  2. OXALIPLATIN [Suspect]
     Indication: COLON CANCER METASTATIC
     Route: 041
     Dates: start: 20090728, end: 20090728
  3. 5-FU [Suspect]
     Indication: COLON CANCER METASTATIC
     Route: 040
     Dates: start: 20090728, end: 20090730
  4. OMEPRAL [Concomitant]
     Dates: start: 20090805
  5. DEPAS [Concomitant]
     Dates: start: 20090709, end: 20090805
  6. PRIMPERAN TAB [Concomitant]
     Dates: start: 20090728
  7. DEXAMETHASONE [Concomitant]
     Dates: start: 20090728, end: 20090728
  8. OLMETEC [Concomitant]
     Dates: start: 20090805
  9. MAGLAX [Concomitant]
     Dates: start: 20090710, end: 20090805
  10. NAUZELIN [Concomitant]
     Dates: start: 20090728
  11. AVASTIN [Suspect]
     Indication: COLON CANCER METASTATIC
     Route: 041
     Dates: start: 20090728, end: 20090728
  12. LOXONIN [Concomitant]
     Dates: start: 20090710, end: 20090805
  13. CALCIUM LEVOFOLINATE [Suspect]
     Indication: COLON CANCER METASTATIC
     Route: 041
     Dates: start: 20090728, end: 20090728

REACTIONS (8)
  - NAUSEA [None]
  - INTESTINAL PERFORATION [None]
  - PLEURAL EFFUSION [None]
  - DECREASED APPETITE [None]
  - HEPATIC ENZYME INCREASED [None]
  - PERITONITIS [None]
  - DELIRIUM [None]
  - TACHYCARDIA [None]
